FAERS Safety Report 24745472 (Version 2)
Quarter: 2025Q1

REPORT INFORMATION
  Report Type: Report from Study
  Country: US (occurrence: US)
  Receive Date: 20241217
  Receipt Date: 20250211
  Transmission Date: 20250409
  Serious: Yes (Hospitalization)
  Sender: ABBVIE
  Company Number: US-ABBVIE-6046477

PATIENT
  Sex: Male

DRUGS (2)
  1. HUMIRA [Suspect]
     Active Substance: ADALIMUMAB
     Indication: Psoriasis
     Route: 058
  2. HUMIRA [Suspect]
     Active Substance: ADALIMUMAB
     Route: 058

REACTIONS (7)
  - Aneurysm [Recovered/Resolved]
  - Cholecystectomy [Recovered/Resolved]
  - Haematotoxicity [Recovering/Resolving]
  - Gastric infection [Recovered/Resolved]
  - Liver abscess [Recovered/Resolved]
  - Hepatectomy [Recovered/Resolved]
  - Sepsis [Recovered/Resolved]
